FAERS Safety Report 24721456 (Version 4)
Quarter: 2025Q2

REPORT INFORMATION
  Report Type: Report from Study
  Country: US (occurrence: US)
  Receive Date: 20241211
  Receipt Date: 20250529
  Transmission Date: 20250716
  Serious: Yes (Other)
  Sender: ALEXION PHARMACEUTICALS
  Company Number: US-AstraZeneca-CH-00760189A

PATIENT

DRUGS (28)
  1. TEZEPELUMAB [Suspect]
     Active Substance: TEZEPELUMAB
     Indication: Asthma
     Dosage: 210 MILLIGRAM, Q4W
  2. SYMBICORT [Suspect]
     Active Substance: BUDESONIDE\FORMOTEROL FUMARATE DIHYDRATE
     Dosage: 160 MILLIGRAM, BID
     Route: 065
  3. AIRSUPRA [Suspect]
     Active Substance: ALBUTEROL SULFATE\BUDESONIDE
  4. FLUMIST [Suspect]
     Active Substance: INFLUENZA A VIRUS A/CALIFORNIA/7/2009 (H1N1) LIVE(ATTENUATED) ANTIGEN\INFLUENZA A VIRUS A/PERTH/16/2
     Route: 065
  5. ALBUTEROL [Concomitant]
     Active Substance: ALBUTEROL
     Indication: Dyspnoea
     Route: 065
  6. ALBUTEROL [Concomitant]
     Active Substance: ALBUTEROL
     Indication: Chest discomfort
  7. ALBUTEROL [Concomitant]
     Active Substance: ALBUTEROL
     Indication: Wheezing
  8. ALBUTEROL SULFATE [Concomitant]
     Active Substance: ALBUTEROL SULFATE
     Route: 065
  9. AZULFIDINE [Concomitant]
     Active Substance: SULFASALAZINE
     Dosage: 4 DOSAGE FORM, QD
  10. BENICAR [Concomitant]
     Active Substance: OLMESARTAN MEDOXOMIL
     Dosage: 1 DOSAGE FORM, EVERY MORNING
  11. CIPRO [Concomitant]
     Active Substance: CIPROFLOXACIN HYDROCHLORIDE
     Dosage: 1 DOSAGE FORM, Q12H
  12. DOXYCYCLINE [Concomitant]
     Active Substance: DOXYCYCLINE
     Dosage: 100 MILLIGRAM, BID
     Route: 065
  13. FOLVITE [Concomitant]
     Active Substance: FOLIC ACID
     Dosage: 1 DOSAGE FORM, EVERY MORNING
  14. FLONASE [Concomitant]
     Active Substance: FLUTICASONE PROPIONATE
  15. KEVZARA [Concomitant]
     Active Substance: SARILUMAB
     Route: 065
  16. LONITEN [Concomitant]
     Active Substance: MINOXIDIL
     Dosage: 4 DOSAGE FORM, QD
  17. MOBIC [Concomitant]
     Active Substance: MELOXICAM
     Indication: Rheumatoid arthritis
     Dosage: 1 DOSAGE FORM, EVERY MORNING
  18. PERCOCET [Concomitant]
     Active Substance: ACETAMINOPHEN\OXYCODONE HYDROCHLORIDE
     Dosage: 1 DOSAGE FORM, Q6H
  19. PREDNISONE [Concomitant]
     Active Substance: PREDNISONE
     Dosage: 20 MILLIGRAM, BID
  20. PREDNISONE [Concomitant]
     Active Substance: PREDNISONE
     Dosage: 20 MILLIGRAM, QD
  21. PREDNISONE [Concomitant]
     Active Substance: PREDNISONE
     Dosage: 10 MILLIGRAM, QD
  22. PREDNISONE [Concomitant]
     Active Substance: PREDNISONE
  23. PREDNISONE [Concomitant]
     Active Substance: PREDNISONE
  24. SARILUMAB [Concomitant]
     Active Substance: SARILUMAB
     Dosage: 150 MILLIGRAM, Q2W
     Route: 065
  25. SINGULAIR [Concomitant]
     Active Substance: MONTELUKAST SODIUM
     Dosage: 1 DOSAGE FORM, QHS
  26. TOPROL XL [Concomitant]
     Active Substance: METOPROLOL SUCCINATE
     Dosage: 1 DOSAGE FORM, QD
  27. TRELEGY ELLIPTA [Concomitant]
     Active Substance: FLUTICASONE FUROATE\UMECLIDINIUM BROMIDE\VILANTEROL TRIFENATATE
  28. XOPENEX [Concomitant]
     Active Substance: LEVALBUTEROL HYDROCHLORIDE
     Route: 065

REACTIONS (20)
  - Prostate cancer [Unknown]
  - Weight decreased [Unknown]
  - Dyspnoea [Unknown]
  - Chest discomfort [Unknown]
  - Cough [Unknown]
  - Wheezing [Unknown]
  - Mobility decreased [Unknown]
  - Dyspnoea exertional [Unknown]
  - Obesity [Unknown]
  - Nasal congestion [Unknown]
  - Limb injury [Unknown]
  - Obstructive airways disorder [Unknown]
  - Total lung capacity abnormal [Recovering/Resolving]
  - Arthritis [Unknown]
  - Rhinitis [Unknown]
  - Productive cough [Unknown]
  - FEV1/FVC ratio decreased [Unknown]
  - Dry skin [Unknown]
  - Condition aggravated [Unknown]
  - Product dose omission issue [Unknown]
